FAERS Safety Report 22600876 (Version 1)
Quarter: 2023Q2

REPORT INFORMATION
  Report Type: Spontaneous
  Country: US (occurrence: US)
  Receive Date: 20230614
  Receipt Date: 20230614
  Transmission Date: 20230722
  Serious: Yes (Hospitalization)
  Sender: FDA-Public Use
  Company Number: US-SA-SAC20230613000661

PATIENT
  Age: 61 Year
  Sex: Female

DRUGS (5)
  1. OXALIPLATIN [Suspect]
     Active Substance: OXALIPLATIN
     Indication: Oesophageal adenocarcinoma
     Dosage: 130 MG/M2
     Route: 042
     Dates: start: 20221221
  2. CAPECITABINE [Suspect]
     Active Substance: CAPECITABINE
     Indication: Oesophageal adenocarcinoma
     Dosage: 1375 MG, QD
     Route: 048
     Dates: start: 20221221, end: 20221228
  3. TISLELIZUMAB [Suspect]
     Active Substance: TISLELIZUMAB
     Indication: Oesophageal adenocarcinoma
     Dosage: 200 MG
     Route: 042
     Dates: start: 20221221
  4. DKN-01 [Suspect]
     Active Substance: DKN-01
     Indication: Oesophageal adenocarcinoma
     Dosage: 600 G
     Route: 042
     Dates: start: 20221221, end: 20230104
  5. DKN-01 [Suspect]
     Active Substance: DKN-01
     Dosage: 600 MG
     Route: 042
     Dates: start: 20230125

REACTIONS (1)
  - Dehydration [Recovered/Resolved]

NARRATIVE: CASE EVENT DATE: 20230102
